FAERS Safety Report 24651973 (Version 1)
Quarter: 2024Q4

REPORT INFORMATION
  Report Type: Spontaneous
  Country: MX (occurrence: MX)
  Receive Date: 20241122
  Receipt Date: 20241122
  Transmission Date: 20250114
  Serious: Yes (Other)
  Sender: NOVITIUM PHARMA
  Company Number: MX-NOVITIUMPHARMA-2024MXNVP02606

PATIENT

DRUGS (1)
  1. INDOMETHACIN [Suspect]
     Active Substance: INDOMETHACIN
     Indication: Product used for unknown indication
     Route: 064

REACTIONS (2)
  - Tricuspid valve incompetence [Recovering/Resolving]
  - Foetal exposure during pregnancy [Unknown]
